FAERS Safety Report 4372081-5 (Version None)
Quarter: 2004Q2

REPORT INFORMATION
  Report Type: 
  Country: None (occurrence: None)
  Receive Date: 20040602
  Receipt Date: 20040518
  Transmission Date: 20050107
  Serious: Yes (Death)
  Sender: FDA-Public Use
  Company Number: 2004-0007076

PATIENT
  Age: 30 Year
  Sex: Female
  Weight: 44 kg

DRUGS (7)
  1. VIREAD [Suspect]
     Indication: HIV INFECTION
     Dosage: 300 MG, 1 IN 1 D, ORAL
     Route: 048
     Dates: start: 20030904
  2. KALETRA [Concomitant]
  3. EPIVIR [Concomitant]
  4. AMBISOME [Concomitant]
  5. MYAMBUTOL [Concomitant]
  6. AVELOX [Concomitant]
  7. MYCOBUTIN [Concomitant]

REACTIONS (3)
  - ANAEMIA [None]
  - MULTI-ORGAN FAILURE [None]
  - RENAL TUBULAR ACIDOSIS [None]
